FAERS Safety Report 8241820-5 (Version None)
Quarter: 2012Q1

REPORT INFORMATION
  Report Type: 
  Country: None (occurrence: None)
  Receive Date: 20120328
  Receipt Date: 20120320
  Transmission Date: 20120608
  Serious: Yes (Other)
  Sender: FDA-Public Use
  Company Number: AU-ASTRAZENECA-2012SE18693

PATIENT
  Age: 67 Year
  Sex: Female

DRUGS (2)
  1. ARIMIDEX [Suspect]
     Route: 048
     Dates: start: 20120301
  2. CYCLOPHOSPHAMIDE [Concomitant]
     Dosage: ONE DAILY FOR 15 DAYS AND ONE WEEK OFF

REACTIONS (5)
  - ARTHRALGIA [None]
  - DIARRHOEA [None]
  - HEADACHE [None]
  - SUICIDAL IDEATION [None]
  - ALOPECIA [None]
